FAERS Safety Report 20674143 (Version 1)
Quarter: 2022Q2

REPORT INFORMATION
  Report Type: Report from Study
  Country: IN (occurrence: IN)
  Receive Date: 20220405
  Receipt Date: 20220405
  Transmission Date: 20220720
  Serious: Yes (Hospitalization, Other)
  Sender: FDA-Public Use
  Company Number: IN-NOVARTISPH-NVSC2022IN075839

PATIENT
  Age: 42 Year
  Sex: Male

DRUGS (2)
  1. NEORAL [Suspect]
     Active Substance: CYCLOSPORINE
     Indication: Renal transplant
     Dosage: 25 MG
     Route: 065
  2. CERTICAN [Suspect]
     Active Substance: EVEROLIMUS
     Indication: Renal transplant
     Dosage: 0.25 MG
     Route: 065

REACTIONS (3)
  - Kidney rupture [Unknown]
  - Renal transplant failure [Unknown]
  - New onset diabetes after transplantation [Unknown]

NARRATIVE: CASE EVENT DATE: 20220328
